FAERS Safety Report 7820053-8 (Version None)
Quarter: 2011Q4

REPORT INFORMATION
  Report Type: 
  Country: None (occurrence: None)
  Receive Date: 20111018
  Receipt Date: 20111017
  Transmission Date: 20120403
  Serious: Yes (Other)
  Sender: FDA-Public Use
  Company Number: DE-TEVA-300030GER

PATIENT
  Sex: Female

DRUGS (2)
  1. ALPRAZOLAM [Suspect]
     Indication: PANIC DISORDER
  2. ALPRAZOLAM [Suspect]
     Indication: ANXIETY
     Dosage: 2 TABLETS WITHIN THE LAST SIX WEEKS
     Route: 048

REACTIONS (1)
  - ABORTION SPONTANEOUS [None]
